FAERS Safety Report 9280055 (Version 1)
Quarter: 2013Q2

REPORT INFORMATION
  Report Type: Spontaneous
  Country: CN (occurrence: CN)
  Receive Date: 20130509
  Receipt Date: 20130509
  Transmission Date: 20140414
  Serious: Yes (Other)
  Sender: FDA-Public Use
  Company Number: CN-JNJFOC-20130503226

PATIENT
  Sex: 0

DRUGS (3)
  1. RISPERDAL [Suspect]
     Indication: MENTAL DISORDER
     Route: 048
  2. RISPERDAL [Suspect]
     Indication: MENTAL DISORDER
     Dosage: 2-5 ML/ DAY WITH AVERAGE DOSE OF 1.61 +/- 0.84 MG/DAY
     Route: 048
  3. NALOXONE [Concomitant]
     Route: 065

REACTIONS (1)
  - Arrhythmia [Unknown]
